FAERS Safety Report 9279124 (Version 1)
Quarter: 2013Q2

REPORT INFORMATION
  Report Type: Spontaneous
  Country: US (occurrence: US)
  Receive Date: 20130508
  Receipt Date: 20130508
  Transmission Date: 20140414
  Serious: No
  Sender: FDA-Public Use
  Company Number: US-BAYER-2013-057570

PATIENT
  Age: 78 Year
  Sex: Female

DRUGS (3)
  1. ALEVE CAPLET [Suspect]
     Dosage: 2 DF, TID
     Route: 048
     Dates: start: 201304
  2. BAYER ASPIRIN REGIMEN ADULT LOW STRENGTH [Concomitant]
  3. MULTIVITAMINS [Concomitant]

REACTIONS (2)
  - Incorrect dose administered [None]
  - Drug ineffective [None]
